FAERS Safety Report 9586960 (Version 5)
Quarter: 2014Q2

REPORT INFORMATION
  Report Type: Spontaneous
  Country: CA (occurrence: CA)
  Receive Date: 20131003
  Receipt Date: 20140609
  Transmission Date: 20141212
  Serious: Yes (Death, Hospitalization)
  Sender: FDA-Public Use
  Company Number: CA-CELGENEUS-028-21880-12082424

PATIENT
  Age: 68 Year
  Sex: Male
  Weight: 72.1 kg

DRUGS (50)
  1. REVLIMID [Suspect]
     Indication: PLASMA CELL MYELOMA
     Dosage: 25 MILLIGRAM
     Route: 048
     Dates: start: 20120309
  2. DEXAMETHASONE [Suspect]
     Indication: PLASMA CELL MYELOMA
     Dosage: 8 MILLIGRAM
     Route: 041
     Dates: start: 20120309
  3. DEXAMETHASONE [Suspect]
     Dosage: 40 MILLIGRAM
     Route: 048
     Dates: start: 20120309
  4. ELOTUZUMAB [Suspect]
     Indication: PLASMA CELL MYELOMA
     Dosage: 694 MILLIGRAM
     Route: 041
     Dates: start: 20120309
  5. OXYGEN [Concomitant]
     Indication: ADVERSE EVENT
     Route: 065
     Dates: start: 20120820, end: 20120820
  6. NORMAL SALINE [Concomitant]
     Indication: ADVERSE EVENT
     Route: 065
     Dates: start: 20120504, end: 20120517
  7. NORMAL SALINE [Concomitant]
     Route: 065
     Dates: start: 20120725, end: 20120725
  8. NORMAL SALINE [Concomitant]
     Route: 065
     Dates: start: 20120727, end: 20120727
  9. NORMAL SALINE [Concomitant]
     Route: 065
     Dates: start: 20120819, end: 20120819
  10. NORMAL SALINE [Concomitant]
     Route: 065
     Dates: start: 20130731, end: 20130810
  11. FLOVENT [Concomitant]
     Indication: ADVERSE EVENT
     Route: 065
     Dates: start: 20120710, end: 20120801
  12. CYCLOBENZAPRINE [Concomitant]
     Indication: ADVERSE EVENT
     Route: 065
     Dates: start: 20120710, end: 20120801
  13. FLAGYL [Concomitant]
     Indication: ADVERSE EVENT
     Route: 065
     Dates: start: 20120504, end: 20120511
  14. FLAGYL [Concomitant]
     Route: 065
     Dates: start: 20120821, end: 20120824
  15. FRAGMIN [Concomitant]
     Indication: ADVERSE EVENT
     Route: 065
     Dates: start: 20120510
  16. FRAGMIN [Concomitant]
     Route: 065
     Dates: start: 20120819
  17. VANCOMYCIN [Concomitant]
     Indication: ADVERSE EVENT
     Route: 065
     Dates: start: 20120302, end: 20120317
  18. VANCOMYCIN [Concomitant]
     Route: 065
     Dates: start: 20120504, end: 20120619
  19. VANCOMYCIN [Concomitant]
     Route: 065
     Dates: start: 20120726, end: 20120804
  20. VANCOMYCIN [Concomitant]
     Route: 065
     Dates: start: 20120821, end: 20121021
  21. ASA [Concomitant]
     Indication: PRODUCT USED FOR UNKNOWN INDICATION
     Route: 065
     Dates: start: 20120309, end: 20120330
  22. PAMIDRONATE [Concomitant]
     Indication: PRODUCT USED FOR UNKNOWN INDICATION
     Route: 065
     Dates: start: 201202
  23. HYDROMORPHONE HCL [Concomitant]
     Indication: ADVERSE EVENT
     Route: 065
     Dates: start: 20120404
  24. HYDROMORPHONE HCL [Concomitant]
     Route: 065
     Dates: start: 20120819
  25. HYDROMORPHONE HCL [Concomitant]
     Route: 065
     Dates: start: 20120823, end: 20120827
  26. HYDROMORPHONE HCL [Concomitant]
     Route: 065
     Dates: start: 20130730, end: 20130810
  27. GRANULOCYTE COLONY-STIMULATING FACTOR NOS [Concomitant]
     Indication: ADVERSE EVENT
     Route: 065
     Dates: start: 20120323
  28. SENOKOT [Concomitant]
     Indication: PRODUCT USED FOR UNKNOWN INDICATION
     Route: 065
     Dates: start: 200803, end: 20120821
  29. HYDROMORPH CONTIN [Concomitant]
     Indication: PRODUCT USED FOR UNKNOWN INDICATION
     Route: 065
     Dates: start: 200803, end: 20120823
  30. HYDROMORPH CONTIN [Concomitant]
     Indication: ADVERSE EVENT
     Route: 065
     Dates: start: 20120827
  31. CEPHALEXIN [Concomitant]
     Indication: PRODUCT USED FOR UNKNOWN INDICATION
     Route: 065
     Dates: start: 20120127, end: 20120307
  32. TYLENOL [Concomitant]
     Indication: ADVERSE EVENT
     Route: 065
     Dates: start: 20120725, end: 20120726
  33. D 5 1/2 NS WITH 40 MEQ KCL [Concomitant]
     Indication: ADVERSE EVENT
     Route: 065
     Dates: start: 20120820, end: 20120825
  34. POTASSIUM CHLORIDE [Concomitant]
     Indication: ADVERSE EVENT
     Route: 065
     Dates: start: 20120820, end: 20120820
  35. MAGNESIUM [Concomitant]
     Indication: ADVERSE EVENT
     Route: 040
     Dates: start: 20120821, end: 20120821
  36. METOPROLOL [Concomitant]
     Indication: ADVERSE EVENT
     Route: 065
     Dates: start: 20120830
  37. MGSO4 [Concomitant]
     Indication: ADVERSE EVENT
     Route: 065
     Dates: start: 20120830, end: 20120830
  38. NS WITH 40MEQ KCL [Concomitant]
     Indication: ADVERSE EVENT
     Route: 065
     Dates: start: 20120820, end: 20120825
  39. ROBITUSSIN [Concomitant]
     Indication: ADVERSE EVENT
     Route: 065
     Dates: start: 20130423, end: 20130423
  40. SENNOSIDES [Concomitant]
     Indication: ADVERSE EVENT
     Route: 065
     Dates: start: 20130730, end: 20130810
  41. LACTULOSE [Concomitant]
     Indication: ADVERSE EVENT
     Route: 065
     Dates: start: 20130730, end: 20130810
  42. K-TEN [Concomitant]
     Indication: ADVERSE EVENT
     Route: 065
     Dates: start: 20130802, end: 20130810
  43. QUETIAPINE [Concomitant]
     Indication: ADVERSE EVENT
     Route: 065
     Dates: start: 20130803, end: 20130810
  44. MAGNESIUM OXIDE [Concomitant]
     Indication: ADVERSE EVENT
     Route: 065
     Dates: start: 20130803, end: 20130810
  45. THIAMINE [Concomitant]
     Indication: ADVERSE EVENT
     Route: 065
     Dates: start: 20130805, end: 20130810
  46. CEFUROXIME [Concomitant]
     Indication: PRODUCT USED FOR UNKNOWN INDICATION
     Route: 065
     Dates: start: 20130805, end: 20130809
  47. MORPHINE [Concomitant]
     Indication: PRODUCT USED FOR UNKNOWN INDICATION
     Route: 065
     Dates: start: 20130809, end: 20130809
  48. HALOPERIDOL [Concomitant]
     Indication: PRODUCT USED FOR UNKNOWN INDICATION
     Route: 065
     Dates: start: 20130809, end: 20130809
  49. SCOPOLAMINE [Concomitant]
     Indication: PRODUCT USED FOR UNKNOWN INDICATION
     Route: 065
     Dates: start: 20130809, end: 20130810
  50. LORAZEPAM [Concomitant]
     Indication: ADVERSE EVENT
     Route: 065
     Dates: start: 20130809, end: 20130810

REACTIONS (2)
  - Plasma cell myeloma [Fatal]
  - Lobar pneumonia [Recovered/Resolved]
